FAERS Safety Report 7418982-2 (Version None)
Quarter: 2011Q2

REPORT INFORMATION
  Report Type: 
  Country: None (occurrence: None)
  Receive Date: 20110415
  Receipt Date: 20110404
  Transmission Date: 20111010
  Serious: Yes (Hospitalization, Other)
  Sender: FDA-Public Use
  Company Number: US-ELI_LILLY_AND_COMPANY-US201002002449

PATIENT
  Sex: Female

DRUGS (7)
  1. FORTEO [Suspect]
     Indication: OSTEOPOROSIS
     Dosage: 20 UG, QD
     Route: 065
  2. PROPRANOLOL [Concomitant]
     Dosage: 10 MG, BID
     Route: 065
  3. LOVASTATIN [Concomitant]
     Dosage: 20 MG, UNKNOWN
     Route: 065
  4. SYNTHROID [Concomitant]
     Dosage: 0.1 MG, UNKNOWN
     Route: 065
  5. AMLODIPINE BESYLATE [Concomitant]
     Dosage: 10 MG, UNKNOWN
     Route: 065
  6. ASPIRIN [Concomitant]
     Dosage: UNK, UNKNOWN
     Route: 065
  7. FORTEO [Suspect]
     Dosage: UNK, UNKNOWN

REACTIONS (5)
  - MALAISE [None]
  - PERFORATED ULCER [None]
  - PIGMENTATION DISORDER [None]
  - ARTHRITIS [None]
  - DRUG DOSE OMISSION [None]
